FAERS Safety Report 9759304 (Version 1)
Quarter: 2013Q4

REPORT INFORMATION
  Report Type: Spontaneous
  Country: US (occurrence: None)
  Receive Date: 20131216
  Receipt Date: 20131216
  Transmission Date: 20140711
  Serious: Yes (Other)
  Sender: FDA-Public Use
  Company Number: 163-21880-12041219

PATIENT
  Age: 78 Year
  Sex: Male

DRUGS (1)
  1. REVLIMID [Suspect]
     Dosage: 10 MG, 1 IN 1 D PO?25 MG, DAILY X 21 DAYS ON, 7 DAYS OFF, PO

REACTIONS (2)
  - Rash generalised [None]
  - Eye swelling [None]
